FAERS Safety Report 12547216 (Version 1)
Quarter: 2016Q3

REPORT INFORMATION
  Report Type: Spontaneous
  Country: US (occurrence: US)
  Receive Date: 20160711
  Receipt Date: 20160711
  Transmission Date: 20161109
  Serious: Yes (Other)
  Sender: FDA-Public Use
  Company Number: US-EGALET US INC-US-2016EGA000003

PATIENT

DRUGS (6)
  1. CLONOPIN [Concomitant]
     Active Substance: CLONAZEPAM
     Indication: MIGRAINE
     Dosage: 0.25 MG, UNK
     Route: 048
  2. AMITRIPTYLENE [Concomitant]
     Active Substance: AMITRIPTYLINE
     Indication: MIGRAINE
     Dosage: 35 MG, UNK
     Route: 048
     Dates: start: 201408
  3. METHYLPHENIDATE. [Concomitant]
     Active Substance: METHYLPHENIDATE
     Indication: FIBROMYALGIA
     Dosage: 0.5 MG, PRN
     Route: 048
     Dates: start: 2015
  4. TOPIMAX                            /01201701/ [Concomitant]
     Active Substance: TOPIRAMATE
     Indication: MIGRAINE
     Dosage: 50 MG AM, 75 MG PM
     Route: 048
     Dates: start: 201408
  5. SPRIX [Suspect]
     Active Substance: KETOROLAC TROMETHAMINE
     Indication: MIGRAINE
     Dosage: 1 DF BOTH NOSTRILS PRN
     Route: 045
     Dates: start: 20151021, end: 20160119
  6. AMBIEN [Concomitant]
     Active Substance: ZOLPIDEM TARTRATE
     Indication: FIBROMYALGIA
     Dosage: 0.5 MG, PRN
     Route: 048
     Dates: start: 2006

REACTIONS (8)
  - Epistaxis [Not Recovered/Not Resolved]
  - Hypoaesthesia oral [Recovered/Resolved]
  - Hypoaesthesia [Unknown]
  - Paraesthesia oral [Recovered/Resolved]
  - Dyspepsia [Recovered/Resolved]
  - Condition aggravated [Not Recovered/Not Resolved]
  - Off label use [Unknown]
  - Nasal discomfort [Recovered/Resolved]

NARRATIVE: CASE EVENT DATE: 201512
